FAERS Safety Report 21015020 (Version 1)
Quarter: 2022Q2

REPORT INFORMATION
  Report Type: Spontaneous
  Country: CA (occurrence: CA)
  Receive Date: 20220628
  Receipt Date: 20220628
  Transmission Date: 20220721
  Serious: Yes (Other)
  Sender: FDA-Public Use
  Company Number: CA-CELLTRION INC.-2022CA010015

PATIENT

DRUGS (2)
  1. INFLECTRA [Suspect]
     Active Substance: INFLIXIMAB-DYYB
     Indication: Crohn^s disease
     Dosage: 600 MG , FREQUENCY: UNKNOWN
     Route: 042
     Dates: start: 20210212
  2. INFLECTRA [Suspect]
     Active Substance: INFLIXIMAB-DYYB
     Dosage: 600 MG , FREQUENCY: UNKNOWN
     Route: 042

REACTIONS (2)
  - Nephrolithiasis [Recovered/Resolved]
  - Cystitis [Recovered/Resolved]
